FAERS Safety Report 23555316 (Version 1)
Quarter: 2024Q1

REPORT INFORMATION
  Report Type: Spontaneous
  Country: US (occurrence: US)
  Receive Date: 20240222
  Receipt Date: 20240222
  Transmission Date: 20240409
  Serious: No
  Sender: FDA-Public Use
  Company Number: US-LANTHEUS-LMI-2023-01147

PATIENT
  Sex: Female

DRUGS (1)
  1. DEFINITY [Suspect]
     Active Substance: PERFLUTREN
     Indication: Stress echocardiogram
     Dosage: UNK (DILUTION DETAILS NOT REPORTED)
     Route: 042

REACTIONS (4)
  - Pharyngeal paraesthesia [Unknown]
  - Muscle spasms [Unknown]
  - Neck pain [Unknown]
  - Back pain [Unknown]
